FAERS Safety Report 7759341-2 (Version None)
Quarter: 2011Q3

REPORT INFORMATION
  Report Type: 
  Country: None (occurrence: None)
  Receive Date: 20110915
  Receipt Date: 20110907
  Transmission Date: 20111222
  Serious: Yes (Hospitalization, Disabling)
  Sender: FDA-Public Use
  Company Number: 2009SP017681

PATIENT
  Age: 41 Year
  Sex: Female
  Weight: 47.6277 kg

DRUGS (9)
  1. NUVARING [Suspect]
     Indication: MENSTRUAL CYCLE MANAGEMENT
     Dosage: 1 DF;QM;VAG
     Route: 067
     Dates: start: 20040901
  2. NUVARING [Suspect]
     Indication: MENSTRUAL CYCLE MANAGEMENT
     Dosage: 1 DF;QM;VAG
     Route: 067
     Dates: start: 20050101
  3. NUVARING [Suspect]
     Indication: MENSTRUAL CYCLE MANAGEMENT
     Dosage: 1 DF;QM;VAG
     Route: 067
     Dates: start: 20030901
  4. AMITRIPTYLINE HCL [Concomitant]
  5. MAXALT [Concomitant]
  6. NASACORT [Concomitant]
  7. TOPAMAX [Concomitant]
  8. PARAFON FORTE [Concomitant]
  9. TYLENOL-500 [Concomitant]

REACTIONS (33)
  - UPPER LIMB FRACTURE [None]
  - MIGRAINE [None]
  - MENTAL IMPAIRMENT [None]
  - PELVIC PAIN [None]
  - URINARY TRACT INFECTION [None]
  - EXERCISE ELECTROCARDIOGRAM ABNORMAL [None]
  - VAGINAL DISCHARGE [None]
  - SINUSITIS [None]
  - BLOOD POTASSIUM DECREASED [None]
  - PAIN IN EXTREMITY [None]
  - ABDOMINAL PAIN [None]
  - CYST [None]
  - INFUSION SITE ERYTHEMA [None]
  - APHASIA [None]
  - COMPLEX REGIONAL PAIN SYNDROME [None]
  - HUMERUS FRACTURE [None]
  - SKIN DISORDER [None]
  - APRAXIA [None]
  - CEREBRAL ARTERY OCCLUSION [None]
  - BRAIN STEM HAEMORRHAGE [None]
  - OSTEOPENIA [None]
  - FALL [None]
  - CEREBROVASCULAR ACCIDENT [None]
  - CEREBRAL INFARCTION [None]
  - INSOMNIA [None]
  - GRAND MAL CONVULSION [None]
  - METRORRHAGIA [None]
  - SPINAL COLUMN INJURY [None]
  - DEPRESSION [None]
  - UNRESPONSIVE TO STIMULI [None]
  - OSTEOPOROSIS [None]
  - CHEST PAIN [None]
  - ATELECTASIS [None]
